FAERS Safety Report 5175399-1 (Version None)
Quarter: 2006Q4

REPORT INFORMATION
  Report Type: 
  Country: None (occurrence: None)
  Receive Date: 20061215
  Receipt Date: 20061211
  Transmission Date: 20070319
  Serious: Yes (Death)
  Sender: FDA-Public Use
  Company Number: US-NOVOPROD-259163

PATIENT
  Age: 11 Month
  Sex: Male

DRUGS (4)
  1. NOVOSEVEN [Suspect]
     Indication: DISSEMINATED INTRAVASCULAR COAGULATION
     Dosage: UNK, UNK (2 SINGLE DOSES)
     Route: 042
  2. PLATELETS [Concomitant]
     Indication: DISSEMINATED INTRAVASCULAR COAGULATION
     Route: 042
  3. FRESH FROZEN PLASMA [Concomitant]
     Indication: DISSEMINATED INTRAVASCULAR COAGULATION
     Route: 042
  4. CRYOPRECIPITATES [Concomitant]
     Indication: DISSEMINATED INTRAVASCULAR COAGULATION
     Route: 042

REACTIONS (1)
  - PULMONARY EMBOLISM [None]
